FAERS Safety Report 11816497 (Version 1)
Quarter: 2015Q4

REPORT INFORMATION
  Report Type: Other
  Country: None (occurrence: US)
  Receive Date: 20151210
  Receipt Date: 20151210
  Transmission Date: 20160305
  Serious: Yes (Death, Hospitalization)
  Sender: FDA-Public Use
  Company Number: US-BRECKENRIDGE PHARMACEUTICAL, INC.-1045292

PATIENT

DRUGS (1)
  1. POLYETHYLENE GLYCOL [Suspect]
     Active Substance: POLYETHYLENE GLYCOLS

REACTIONS (4)
  - Fibrosis [Fatal]
  - Granulomatous pneumonitis [Fatal]
  - Respiratory failure [Fatal]
  - Alveolitis [Fatal]
